FAERS Safety Report 5519733-9 (Version None)
Quarter: 2007Q4

REPORT INFORMATION
  Report Type: 
  Country: None (occurrence: None)
  Receive Date: 20071116
  Receipt Date: 20070723
  Transmission Date: 20080405
  Serious: No
  Sender: FDA-Public Use
  Company Number: A0666617A

PATIENT
  Sex: Female

DRUGS (2)
  1. COREG CR [Suspect]
     Indication: DRUG USE FOR UNKNOWN INDICATION
     Dates: start: 20070201
  2. COREG [Suspect]
     Indication: DRUG USE FOR UNKNOWN INDICATION
     Dates: start: 20070201

REACTIONS (1)
  - MUSCLE SPASMS [None]
